FAERS Safety Report 13146335 (Version 1)
Quarter: 2017Q1

REPORT INFORMATION
  Report Type: Spontaneous
  Country: US (occurrence: US)
  Receive Date: 20170125
  Receipt Date: 20170125
  Transmission Date: 20170428
  Serious: Yes (Death, Hospitalization, Other)
  Sender: FDA-Public Use
  Company Number: US-CIPLA LTD.-2017US01164

PATIENT

DRUGS (2)
  1. LAMOTRIGINE. [Suspect]
     Active Substance: LAMOTRIGINE
     Indication: EPILEPSY
     Dosage: 100 MG, HALF THE TABLET IN THE MORNING AND HALF THE TABLET IN THE EVENING
     Route: 048
     Dates: start: 20161027, end: 20161112
  2. VIMPAT [Suspect]
     Active Substance: LACOSAMIDE
     Indication: SEIZURE
     Dosage: UNK
     Route: 065

REACTIONS (11)
  - Dyskinesia [Not Recovered/Not Resolved]
  - Pulmonary embolism [Unknown]
  - Weight decreased [Not Recovered/Not Resolved]
  - Loss of consciousness [Unknown]
  - Feeding disorder [Not Recovered/Not Resolved]
  - Dehydration [Not Recovered/Not Resolved]
  - Condition aggravated [Unknown]
  - Cardiac arrest [Unknown]
  - Respiratory failure [Fatal]
  - Seizure [Unknown]
  - Dysphagia [Not Recovered/Not Resolved]

NARRATIVE: CASE EVENT DATE: 20161027
